FAERS Safety Report 23881351 (Version 1)
Quarter: 2024Q2

REPORT INFORMATION
  Report Type: Other
  Country: AU (occurrence: None)
  Receive Date: 20240521
  Receipt Date: 20240521
  Transmission Date: 20240717
  Serious: Yes (Other)
  Sender: FDA-Public Use
  Company Number: AU-ROCHE-3563996

PATIENT
  Age: 44 Year
  Sex: Female

DRUGS (1)
  1. OCRELIZUMAB [Suspect]
     Active Substance: OCRELIZUMAB
     Indication: Multiple sclerosis
     Route: 042
     Dates: start: 20240514

REACTIONS (1)
  - Anxiety [Unknown]

NARRATIVE: CASE EVENT DATE: 20240514
